FAERS Safety Report 4737314-1 (Version None)
Quarter: 2005Q3

REPORT INFORMATION
  Report Type: 
  Country: None (occurrence: None)
  Receive Date: 20050808
  Receipt Date: 20050729
  Transmission Date: 20060218
  Serious: Yes (Hospitalization, Other)
  Sender: FDA-Public Use
  Company Number: PHBS2005IT11087

PATIENT
  Age: 50 Year
  Sex: Male
  Weight: 51 kg

DRUGS (4)
  1. CYCLOSPORINE [Suspect]
     Indication: RENAL TRANSPLANT
     Dosage: 150 MG/D
     Route: 048
     Dates: start: 19960101
  2. FLUCONAZOLE [Suspect]
     Dosage: 150 MG/D
  3. PREDNISONE [Suspect]
     Indication: RENAL TRANSPLANT
     Dosage: 25 MG/D
     Route: 048
     Dates: start: 19960101, end: 20000101
  4. PREDNISONE [Suspect]
     Dosage: 6 MG/D
     Route: 048
     Dates: start: 20000101

REACTIONS (15)
  - ALOPECIA [None]
  - CORONARY ARTERY SURGERY [None]
  - FUNGAL INFECTION [None]
  - HYPERTENSION [None]
  - MYCOBACTERIUM CHELONEI INFECTION [None]
  - MYOCARDIAL INFARCTION [None]
  - PAPILLOMA VIRAL INFECTION [None]
  - PHLEBECTOMY [None]
  - PHLEBITIS [None]
  - SCAB [None]
  - SKIN DISCOLOURATION [None]
  - SKIN NODULE [None]
  - SKIN PAPILLOMA [None]
  - SKIN ULCER [None]
  - SUBCUTANEOUS ABSCESS [None]
